FAERS Safety Report 21106372 (Version 1)
Quarter: 2022Q3

REPORT INFORMATION
  Report Type: Spontaneous
  Country: CN (occurrence: CN)
  Receive Date: 20220720
  Receipt Date: 20220720
  Transmission Date: 20221027
  Serious: Yes (Hospitalization)
  Sender: FDA-Public Use
  Company Number: CN-BAYER-2022A096234

PATIENT
  Age: 23 Year
  Sex: Female

DRUGS (2)
  1. YASMIN [Suspect]
     Active Substance: DROSPIRENONE\ETHINYL ESTRADIOL
     Indication: Acne
     Dosage: UNK UNK, QD
     Route: 048
     Dates: start: 202008, end: 202012
  2. YASMIN [Suspect]
     Active Substance: DROSPIRENONE\ETHINYL ESTRADIOL
     Indication: Acne
     Dosage: 2 DF, QD
     Route: 048
     Dates: start: 2021, end: 202112

REACTIONS (3)
  - Sudden hearing loss [Recovering/Resolving]
  - Abnormal withdrawal bleeding [None]
  - Product use in unapproved indication [None]

NARRATIVE: CASE EVENT DATE: 20200801
